FAERS Safety Report 5528815-7 (Version None)
Quarter: 2007Q4

REPORT INFORMATION
  Report Type: 
  Country: None (occurrence: None)
  Receive Date: 20071119
  Receipt Date: 20070904
  Transmission Date: 20080405
  Serious: Yes (Other)
  Sender: FDA-Public Use
  Company Number: 40494

PATIENT
  Sex: Female
  Weight: 92.9874 kg

DRUGS (2)
  1. CHLOROPROCAINE INJ. USP 3% 600MG/20ML - BEDFORD LABS, INC. [Suspect]
     Indication: ANAESTHESIA
     Dosage: 20ML/X1/EPIDURAL
     Route: 008
     Dates: start: 20070902
  2. CHLOROPROCAINE INJ. USP 3% 600MG/20ML - BEDFORD LABS, INC. [Suspect]
     Indication: CAESAREAN SECTION
     Dosage: 20ML/X1/EPIDURAL
     Route: 008
     Dates: start: 20070902

REACTIONS (1)
  - DRUG INEFFECTIVE [None]
